FAERS Safety Report 13647117 (Version 13)
Quarter: 2019Q1

REPORT INFORMATION
  Report Type: Report from Study
  Country: US (occurrence: CA)
  Receive Date: 20170613
  Receipt Date: 20190117
  Transmission Date: 20190417
  Serious: Yes (Hospitalization, Other)
  Sender: FDA-Public Use
  Company Number: US-SUNOVION-2017SUN002040

PATIENT
  Age: 84 Year
  Sex: Female

DRUGS (26)
  1. XOLAIR [Suspect]
     Active Substance: OMALIZUMAB
     Dosage: 375 MG, BIW
     Route: 058
     Dates: start: 20170310
  2. AVAMIS [Concomitant]
  3. HYDROCHLOROTHIAZIDE. [Concomitant]
     Active Substance: HYDROCHLOROTHIAZIDE
     Dosage: 25 MG, UNK
  4. XOLAIR [Suspect]
     Active Substance: OMALIZUMAB
     Dosage: UNK; REGIMEN #10
     Route: 058
     Dates: start: 20180208
  5. PREDNISONE. [Concomitant]
     Active Substance: PREDNISONE
  6. XOLAIR [Suspect]
     Active Substance: OMALIZUMAB
     Dosage: UNK REGIMEN #3
     Route: 058
     Dates: start: 20170407
  7. XOLAIR [Suspect]
     Active Substance: OMALIZUMAB
     Dosage: UNK REGIMEN #6
     Route: 058
     Dates: start: 20170518
  8. XOLAIR [Suspect]
     Active Substance: OMALIZUMAB
     Dosage: UNK; REGIMEN #9
     Route: 058
     Dates: start: 20170713
  9. GLYCOPYRROLATE. [Suspect]
     Active Substance: GLYCOPYRROLATE
     Indication: ASTHMA
     Dosage: 1 DF, QD
     Route: 055
     Dates: start: 201406
  10. XOLAIR [Suspect]
     Active Substance: OMALIZUMAB
     Dosage: UNK, REGIMEN #8
     Route: 058
     Dates: start: 20170615
  11. XOLAIR [Suspect]
     Active Substance: OMALIZUMAB
     Dosage: 375 MG, BIW #12
     Route: 058
     Dates: start: 20180308
  12. ADVAIR HFA [Concomitant]
     Active Substance: FLUTICASONE PROPIONATE\SALMETEROL XINAFOATE
     Dosage: 250 ?G, UNK
  13. XOLAIR [Suspect]
     Active Substance: OMALIZUMAB
     Dosage: UNK REGIMEN #5
     Route: 058
     Dates: start: 20170504
  14. XOLAIR [Suspect]
     Active Substance: OMALIZUMAB
     Dosage: UNK, #13
     Route: 058
     Dates: start: 20180322
  15. AMLODIPINE [Suspect]
     Active Substance: AMLODIPINE BESYLATE
     Indication: PRODUCT USED FOR UNKNOWN INDICATION
     Dosage: 10 MG, QD
  16. RISEDRONATE [Concomitant]
     Active Substance: RISEDRONATE SODIUM
     Indication: PRODUCT USED FOR UNKNOWN INDICATION
     Dosage: 35 MG, UNK
  17. REACTINE [CETIRIZINE HYDROCHLORIDE] [Concomitant]
     Active Substance: CETIRIZINE HYDROCHLORIDE
     Dosage: 5 MG, UNK
  18. XOLAIR [Suspect]
     Active Substance: OMALIZUMAB
     Indication: ASTHMA
     Dosage: 375 MG, BIW
     Route: 058
     Dates: start: 20181228
  19. XOLAIR [Suspect]
     Active Substance: OMALIZUMAB
     Dosage: 375 MG, BIW #11
     Route: 058
     Dates: start: 20180222
  20. XOLAIR [Suspect]
     Active Substance: OMALIZUMAB
     Dosage: UNK REGIMEN #2
     Route: 058
     Dates: start: 201703
  21. ATORVASTATIN [Concomitant]
     Active Substance: ATORVASTATIN
     Indication: BLOOD CHOLESTEROL
     Dosage: 10 MG, QD
  22. VENTOLIN [Concomitant]
     Active Substance: ALBUTEROL SULFATE
  23. XOLAIR [Suspect]
     Active Substance: OMALIZUMAB
     Dosage: UNK REGIMEN #4
     Route: 058
     Dates: start: 20170421
  24. XOLAIR [Suspect]
     Active Substance: OMALIZUMAB
     Dosage: UNK REGIMEN #7
     Route: 058
     Dates: start: 20170601
  25. SINGULAIR [Concomitant]
     Active Substance: MONTELUKAST SODIUM
     Dosage: 10 MG, UNK
  26. HYDRASENSE [Concomitant]
     Active Substance: SEA WATER

REACTIONS (22)
  - Dyspnoea [Recovering/Resolving]
  - Influenza [Recovering/Resolving]
  - Heart rate increased [Unknown]
  - Sputum discoloured [Unknown]
  - Poor quality sleep [Unknown]
  - Fatigue [Unknown]
  - Dizziness [Unknown]
  - Hypertension [Unknown]
  - Nasopharyngitis [Unknown]
  - Product use in unapproved indication [Unknown]
  - General physical health deterioration [Unknown]
  - Secretion discharge [Unknown]
  - Choking sensation [Unknown]
  - Malaise [Unknown]
  - Confusional state [Unknown]
  - Productive cough [Unknown]
  - Cognitive disorder [Unknown]
  - Asthenia [Not Recovered/Not Resolved]
  - Amnesia [Unknown]
  - Influenza like illness [Unknown]
  - Asphyxia [Unknown]
  - Dysphonia [Recovering/Resolving]

NARRATIVE: CASE EVENT DATE: 20170310
